FAERS Safety Report 14495833 (Version 1)
Quarter: 2018Q1

REPORT INFORMATION
  Report Type: Spontaneous
  Country: NO (occurrence: NO)
  Receive Date: 20180207
  Receipt Date: 20180207
  Transmission Date: 20180509
  Serious: Yes (Life-Threatening, Hospitalization)
  Sender: FDA-Public Use
  Company Number: NO-ROCHE-2065523

PATIENT
  Age: 57 Year
  Sex: Female

DRUGS (3)
  1. ROACTEMRA [Suspect]
     Active Substance: TOCILIZUMAB
     Indication: RHEUMATOID ARTHRITIS
     Route: 058
     Dates: start: 2013, end: 201708
  2. PREDNISOLONE. [Concomitant]
     Active Substance: PREDNISOLONE
  3. ARAVA [Concomitant]
     Active Substance: LEFLUNOMIDE
     Indication: RHEUMATOID ARTHRITIS
     Route: 048
     Dates: start: 2015, end: 201708

REACTIONS (1)
  - Diverticulum [Recovered/Resolved]

NARRATIVE: CASE EVENT DATE: 20170808
